FAERS Safety Report 8186882-9 (Version None)
Quarter: 2012Q1

REPORT INFORMATION
  Report Type: 
  Country: None (occurrence: None)
  Receive Date: 20120302
  Receipt Date: 20120227
  Transmission Date: 20120608
  Serious: Yes (Other)
  Sender: FDA-Public Use
  Company Number: ADR-2012-00299

PATIENT
  Sex: Male
  Weight: 67 kg

DRUGS (1)
  1. BACLOFEN [Suspect]
     Dosage: 240 MCG/DAY

REACTIONS (3)
  - FLUID RETENTION [None]
  - MUSCLE SPASTICITY [None]
  - EFFUSION [None]
